FAERS Safety Report 18640965 (Version 1)
Quarter: 2020Q4

REPORT INFORMATION
  Report Type: Spontaneous
  Country: US (occurrence: US)
  Receive Date: 20201221
  Receipt Date: 20201221
  Transmission Date: 20210114
  Serious: No
  Sender: FDA-Public Use
  Company Number: US-CELLTRION INC.-2020US031157

PATIENT

DRUGS (4)
  1. ZOVIRAX [Concomitant]
     Active Substance: ACYCLOVIR
  2. TRUXIMA [Suspect]
     Active Substance: RITUXIMAB-ABBS
     Indication: MANTLE CELL LYMPHOMA
     Dosage: 900 MG (375 MG PER),EVERY 8 WEEKS FOR 3 YEARS
     Dates: start: 20200625
  3. TRUXIMA [Suspect]
     Active Substance: RITUXIMAB-ABBS
     Dosage: 375 MG PER METERED DOSE. EVERY 8 WEEKS FOR 3 YEARS
     Dates: start: 20200827
  4. TRUXIMA [Suspect]
     Active Substance: RITUXIMAB-ABBS
     Dosage: 375 MG PER METERED DOSE. EVERY 8 WEEKS FOR 3 YEARS
     Dates: start: 20201022

REACTIONS (1)
  - Off label use [Unknown]
